FAERS Safety Report 13330759 (Version 1)
Quarter: 2017Q1

REPORT INFORMATION
  Report Type: Spontaneous
  Country: US (occurrence: US)
  Receive Date: 20170314
  Receipt Date: 20170314
  Transmission Date: 20170428
  Serious: No
  Sender: FDA-Public Use
  Company Number: US-TEVA-737799ACC

PATIENT
  Sex: Female

DRUGS (1)
  1. ACTAVIS VALACICLOVIR [Suspect]
     Active Substance: VALACYCLOVIR HYDROCHLORIDE
     Route: 065

REACTIONS (1)
  - Reaction to drug excipients [Unknown]
